FAERS Safety Report 20224586 (Version 3)
Quarter: 2022Q1

REPORT INFORMATION
  Report Type: Spontaneous
  Country: DE (occurrence: DE)
  Receive Date: 20211223
  Receipt Date: 20220228
  Transmission Date: 20220423
  Serious: Yes (Other)
  Sender: FDA-Public Use
  Company Number: DE-PFIZER INC-202101775354

PATIENT
  Age: 77 Year
  Sex: Male
  Weight: 75 kg

DRUGS (7)
  1. ACCUPRO [Suspect]
     Active Substance: QUINAPRIL HYDROCHLORIDE
     Indication: Hypertension
     Dosage: 5 MG, 1X/DAY
     Route: 048
     Dates: start: 2004, end: 2021
  2. ATORVASTATIN [Concomitant]
     Active Substance: ATORVASTATIN
  3. NEBIVOLOL [Concomitant]
     Active Substance: NEBIVOLOL
  4. XARELTO [Concomitant]
     Active Substance: RIVAROXABAN
  5. VITAMIN H [Concomitant]
  6. VITAMIN D NOS [Concomitant]
     Active Substance: VITAMIN D NOS
  7. UBICHINON [Concomitant]

REACTIONS (11)
  - Polyneuropathy [Recovered/Resolved]
  - Mental impairment [Recovered/Resolved]
  - Hypokinesia [Recovered/Resolved]
  - Reaction to excipient [Recovered/Resolved]
  - Neuropathy peripheral [Recovered/Resolved]
  - Dizziness [Recovered/Resolved]
  - Balance disorder [Recovered/Resolved]
  - Amnesia [Recovered/Resolved]
  - Temperature intolerance [Recovered/Resolved]
  - Movement disorder [Recovered/Resolved]
  - Hypoaesthesia [Recovered/Resolved]

NARRATIVE: CASE EVENT DATE: 20210101
